FAERS Safety Report 22122632 (Version 6)
Quarter: 2023Q2

REPORT INFORMATION
  Report Type: Report from Study
  Country: IE (occurrence: IE)
  Receive Date: 20230321
  Receipt Date: 20230424
  Transmission Date: 20230721
  Serious: No
  Sender: FDA-Public Use
  Company Number: IE-JNJFOC-20230316956

PATIENT
  Age: 58 Year
  Sex: Female

DRUGS (6)
  1. TREMFYA [Suspect]
     Active Substance: GUSELKUMAB
     Indication: Psoriatic arthropathy
     Route: 058
     Dates: start: 20221006
  2. ESOMEPRAZOLE [Concomitant]
     Active Substance: ESOMEPRAZOLE
  3. CHOLECALCIFEROL [Concomitant]
     Active Substance: CHOLECALCIFEROL
  4. LECANIDIPINE [Concomitant]
  5. PREDNISOLONE [Concomitant]
     Active Substance: PREDNISOLONE
  6. EZETIMIBE [Concomitant]
     Active Substance: EZETIMIBE

REACTIONS (5)
  - Syringe issue [Unknown]
  - Product dose omission issue [Unknown]
  - Needle issue [Unknown]
  - Underdose [Unknown]
  - Off label use [Unknown]

NARRATIVE: CASE EVENT DATE: 20230223
